FAERS Safety Report 13851490 (Version 2)
Quarter: 2017Q3

REPORT INFORMATION
  Report Type: Report from Study
  Country: US (occurrence: US)
  Receive Date: 20170810
  Receipt Date: 20170817
  Transmission Date: 20171127
  Serious: No
  Sender: FDA-Public Use
  Company Number: US-ALEXION PHARMACEUTICALS INC.-A201708761

PATIENT
  Sex: Female

DRUGS (2)
  1. STRENSIQ [Suspect]
     Active Substance: ASFOTASE ALFA
     Indication: HYPOPHOSPHATASIA
     Dosage: 80 MG, TIW
     Route: 058
     Dates: start: 20170721
  2. STRENSIQ [Suspect]
     Active Substance: ASFOTASE ALFA
     Dosage: UNK

REACTIONS (10)
  - Fatigue [Unknown]
  - Influenza like illness [Unknown]
  - Asthenia [Unknown]
  - Pain [Unknown]
  - Drug intolerance [Unknown]
  - Arthralgia [Unknown]
  - Bone pain [Unknown]
  - Incorrect dose administered [Unknown]
  - Hypersomnia [Unknown]
  - Nausea [Unknown]

NARRATIVE: CASE EVENT DATE: 20170811
